FAERS Safety Report 7701976-7 (Version None)
Quarter: 2011Q3

REPORT INFORMATION
  Report Type: 
  Country: None (occurrence: None)
  Receive Date: 20110822
  Receipt Date: 20110811
  Transmission Date: 20111222
  Serious: Yes (Other)
  Sender: FDA-Public Use
  Company Number: PHHO2011GB13874

PATIENT
  Age: 63 Year

DRUGS (1)
  1. ZOLEDRONIC [Suspect]
     Dosage: 4 MG, UNK
     Route: 042
     Dates: start: 20040308, end: 20070226

REACTIONS (1)
  - OSTEONECROSIS OF JAW [None]
